FAERS Safety Report 5524364-0 (Version None)
Quarter: 2007Q4

REPORT INFORMATION
  Report Type: 
  Country: None (occurrence: None)
  Receive Date: 20071121
  Receipt Date: 20071113
  Transmission Date: 20080405
  Serious: Yes (Other)
  Sender: FDA-Public Use
  Company Number: GB-PFIZER INC-2007096163

PATIENT
  Sex: Female

DRUGS (2)
  1. INHALED HUMAN INSULIN [Suspect]
     Indication: DIABETES MELLITUS
     Route: 055
  2. LANTUS [Concomitant]

REACTIONS (4)
  - BLOOD GLUCOSE INCREASED [None]
  - COUGH [None]
  - THROAT IRRITATION [None]
  - WRONG TECHNIQUE IN DRUG USAGE PROCESS [None]
